FAERS Safety Report 12958740 (Version 1)
Quarter: 2016Q4

REPORT INFORMATION
  Report Type: Spontaneous
  Country: DE (occurrence: DE)
  Receive Date: 20161121
  Receipt Date: 20161121
  Transmission Date: 20170207
  Serious: Yes (Other)
  Sender: FDA-Public Use
  Company Number: DE-PAR PHARMACEUTICAL COMPANIES-2016SCPR016113

PATIENT

DRUGS (4)
  1. PREDNISOLONE. [Concomitant]
     Active Substance: PREDNISOLONE
     Indication: ANAPHYLACTIC REACTION
     Dosage: 250 MG, UNKNOWN
  2. CLEMASTIN [Concomitant]
     Active Substance: CLEMASTINE
     Indication: ANAPHYLACTIC REACTION
     Dosage: 2 MG, UNKNOWN
  3. ADRENALIN [Suspect]
     Active Substance: EPINEPHRINE
     Indication: PHARYNGEAL OEDEMA
     Dosage: 0.3 MG, SINGLE
  4. CIMETIDIN                          /00397401/ [Concomitant]
     Indication: ANAPHYLACTIC REACTION
     Dosage: 200 MG, UNKNOWN

REACTIONS (2)
  - Stress cardiomyopathy [Unknown]
  - Off label use [Unknown]
